FAERS Safety Report 19594704 (Version 2)
Quarter: 2021Q3

REPORT INFORMATION
  Report Type: Report from Study
  Country: US (occurrence: US)
  Receive Date: 20210722
  Receipt Date: 20210825
  Transmission Date: 20211014
  Serious: Yes (Hospitalization, Other)
  Sender: FDA-Public Use
  Company Number: US-SA-2018SA302230

PATIENT
  Age: 57 Year
  Sex: Female

DRUGS (2)
  1. DUPILUMAB [Suspect]
     Active Substance: DUPILUMAB
     Indication: ECZEMA
     Dosage: 300 MG, QOW
     Route: 058
     Dates: start: 20181017, end: 20190531
  2. DUPILUMAB [Suspect]
     Active Substance: DUPILUMAB
     Indication: DERMATITIS ATOPIC
     Dosage: 600 MG, 1X
     Route: 058
     Dates: start: 20181003, end: 20181003

REACTIONS (11)
  - Unevaluable event [Unknown]
  - Jaundice [Recovered/Resolved]
  - Injection site mass [Recovered/Resolved]
  - Pruritus [Not Recovered/Not Resolved]
  - Hepatic cirrhosis [Recovering/Resolving]
  - Pruritus [Recovered/Resolved]
  - Drug ineffective [Unknown]
  - Liver disorder [Not Recovered/Not Resolved]
  - Wheezing [Not Recovered/Not Resolved]
  - Discomfort [Recovered/Resolved]
  - Blood bilirubin increased [Recovered/Resolved]

NARRATIVE: CASE EVENT DATE: 20181017
